FAERS Safety Report 9798634 (Version 1)
Quarter: 2013Q4

REPORT INFORMATION
  Report Type: Spontaneous
  Country: IN (occurrence: None)
  Receive Date: 20131231
  Receipt Date: 20131231
  Transmission Date: 20140711
  Serious: Yes (Other)
  Sender: FDA-Public Use
  Company Number: 2013P1022299

PATIENT
  Age: 75 Year
  Sex: Male

DRUGS (1)
  1. OPIUM [Suspect]

REACTIONS (4)
  - Abdominal pain upper [None]
  - Biliary dilatation [None]
  - Pancreatic duct dilatation [None]
  - Sphincter of Oddi dysfunction [None]
